FAERS Safety Report 5410164-9 (Version None)
Quarter: 2007Q3

REPORT INFORMATION
  Report Type: 
  Country: None (occurrence: None)
  Receive Date: 20070713
  Receipt Date: 20070411
  Transmission Date: 20080115
  Serious: No
  Sender: FDA-Public Use
  Company Number: 2007SP001285

PATIENT
  Age: 84 Year
  Sex: Female
  Weight: 61.2356 kg

DRUGS (8)
  1. LUNESTA [Suspect]
     Indication: INSOMNIA
     Dosage: 2 MG; HS; ORAL
     Route: 048
     Dates: start: 20070109, end: 20070111
  2. ATORVASTATIN CALCIUM [Concomitant]
  3. TOPROL-XL [Concomitant]
  4. VALSARTAN [Concomitant]
  5. LORAZEPAM [Concomitant]
  6. FISH OIL [Concomitant]
  7. ASPIRIN [Concomitant]
  8. MAGNESIUM SULFATE [Concomitant]

REACTIONS (1)
  - DYSGEUSIA [None]
